FAERS Safety Report 21314611 (Version 1)
Quarter: 2022Q3

REPORT INFORMATION
  Report Type: Spontaneous
  Country: US (occurrence: None)
  Receive Date: 20220909
  Receipt Date: 20220909
  Transmission Date: 20221027
  Serious: No
  Sender: FDA-Public Use
  Company Number: US-ARIS GLOBAL-202110-1858

PATIENT
  Sex: Male

DRUGS (7)
  1. OXERVATE [Suspect]
     Active Substance: CENEGERMIN-BKBJ
     Indication: Neurotrophic keratopathy
     Route: 047
     Dates: start: 20211009
  2. VITAMINS [Concomitant]
     Active Substance: VITAMINS
  3. ALLEGRA ALLERGY [Concomitant]
     Active Substance: FEXOFENADINE HYDROCHLORIDE
  4. VITAMIN B1 [Concomitant]
     Active Substance: THIAMINE HYDROCHLORIDE
  5. VITAMIN D2 [Concomitant]
     Active Substance: ERGOCALCIFEROL
  6. NAPROXEN [Concomitant]
     Active Substance: NAPROXEN
  7. PREDNISOLONE [Concomitant]
     Active Substance: PREDNISOLONE
     Dosage: 15 MG/5 ML

REACTIONS (1)
  - Eye pain [Unknown]
